FAERS Safety Report 7885679-4 (Version None)
Quarter: 2011Q4

REPORT INFORMATION
  Report Type: 
  Country: None (occurrence: None)
  Receive Date: 20111102
  Receipt Date: 20110629
  Transmission Date: 20120403
  Serious: No
  Sender: FDA-Public Use
  Company Number: US-AMGEN-USASP2011029028

PATIENT
  Age: 67 Year
  Sex: Male

DRUGS (1)
  1. ENBREL [Suspect]
     Indication: PSORIASIS
     Dosage: 50 MG, QWK
     Dates: start: 20110418, end: 20110601

REACTIONS (6)
  - INJECTION SITE PAIN [None]
  - FURUNCLE [None]
  - BLOODY DISCHARGE [None]
  - HEADACHE [None]
  - INJECTION SITE REACTION [None]
  - INJECTION SITE RASH [None]
